FAERS Safety Report 9882073 (Version 1)
Quarter: 2014Q1

REPORT INFORMATION
  Report Type: Spontaneous
  Country: DE (occurrence: DE)
  Receive Date: 20140207
  Receipt Date: 20140207
  Transmission Date: 20141002
  Serious: Yes (Other)
  Sender: FDA-Public Use
  Company Number: PHHY2014DE014490

PATIENT
  Sex: Female

DRUGS (2)
  1. AFINITOR [Suspect]
     Indication: OVARIAN CANCER
     Dosage: 5 MG, QD
     Route: 048
  2. AFINITOR [Suspect]
     Indication: OFF LABEL USE

REACTIONS (4)
  - Malignant neoplasm progression [Unknown]
  - Metastases to lung [Unknown]
  - Pulmonary function test decreased [Unknown]
  - Pleural effusion [Unknown]
